FAERS Safety Report 6631708-5 (Version None)
Quarter: 2010Q1

REPORT INFORMATION
  Report Type: 
  Country: None (occurrence: None)
  Receive Date: 20100312
  Receipt Date: 20100301
  Transmission Date: 20100710
  Serious: Yes (Other)
  Sender: FDA-Public Use
  Company Number: US-GENZYME-CLOF-1000888

PATIENT
  Age: 38 Year
  Sex: Female

DRUGS (2)
  1. CLOLAR [Suspect]
     Indication: ACUTE MYELOID LEUKAEMIA
     Dosage: 20 MG, UNK
     Route: 042
     Dates: start: 20090702, end: 20090805
  2. GEMTUZUMAB OZOGAMICIN [Suspect]
     Indication: ACUTE MYELOID LEUKAEMIA
     Dosage: UNK UNK, UNK
     Route: 065
     Dates: start: 20090701

REACTIONS (11)
  - ALANINE AMINOTRANSFERASE INCREASED [None]
  - BLOOD BILIRUBIN INCREASED [None]
  - ENCEPHALOPATHY [None]
  - HYPONATRAEMIA [None]
  - HYPOPHOSPHATAEMIA [None]
  - LYMPHOPENIA [None]
  - NEUTROPENIA [None]
  - PSYCHOTIC DISORDER [None]
  - RETROGRADE PORTAL VEIN FLOW [None]
  - SOMNOLENCE [None]
  - THROMBOCYTOPENIA [None]
